FAERS Safety Report 24312401 (Version 7)
Quarter: 2024Q4

REPORT INFORMATION
  Report Type: Report from Study
  Country: GB (occurrence: GB)
  Receive Date: 20240912
  Receipt Date: 20241227
  Transmission Date: 20250115
  Serious: Yes (Hospitalization)
  Sender: UCB
  Company Number: GB-UCBSA-2024044725

PATIENT
  Age: 67 Year
  Sex: Female
  Weight: 94.1 kg

DRUGS (23)
  1. BIMEKIZUMAB [Suspect]
     Active Substance: BIMEKIZUMAB
     Indication: Psoriatic arthropathy
     Dosage: 320 MILLIGRAM, EV 4 WEEKS
     Route: 058
     Dates: start: 20240722, end: 20240819
  2. ACETAMINOPHEN [Concomitant]
     Active Substance: ACETAMINOPHEN
     Indication: Psoriatic arthropathy
     Dosage: 1 GRAM, 4X/DAY (QID)
     Dates: start: 20240827, end: 20240905
  3. ENOXAPARIN [Concomitant]
     Active Substance: ENOXAPARIN
     Indication: Thrombosis prophylaxis
     Dosage: 150 MILLIGRAM, ONCE DAILY (QD)
     Route: 058
     Dates: start: 20240827, end: 20240905
  4. GAVISCON ADVANCED [Concomitant]
     Indication: Gastrooesophageal reflux disease
     Dosage: 10 MILLILITER, 4X/DAY (QID)
     Dates: start: 20240830, end: 20240905
  5. METHOTREXATE [Concomitant]
     Active Substance: METHOTREXATE
     Indication: Adverse event
     Dosage: 20 MILLIGRAM, WEEKLY (QW)
     Dates: start: 20210702, end: 20240827
  6. ETORICOXIB [Concomitant]
     Active Substance: ETORICOXIB
     Indication: Product used for unknown indication
     Dosage: 60 MILLIGRAM, ONCE DAILY (QD)
     Dates: start: 20210720
  7. FOLIC ACID [Concomitant]
     Active Substance: FOLIC ACID
     Indication: Product used for unknown indication
     Dosage: 5 MILLIGRAM, ONCE DAILY (QD)
     Dates: start: 20210702
  8. CODEINE [Concomitant]
     Active Substance: CODEINE
     Indication: Product used for unknown indication
     Dosage: 60 MILLIGRAM, 4X/DAY (QID)
     Dates: start: 20240308
  9. MORPHINE SULFATE [Concomitant]
     Active Substance: MORPHINE SULFATE
     Indication: Product used for unknown indication
     Dosage: 5 MILLIGRAM, 4X/DAY (QID)
     Dates: start: 20240508
  10. METHYLPREDNISOLONE ACETATE [Concomitant]
     Active Substance: METHYLPREDNISOLONE ACETATE
     Indication: Product used for unknown indication
     Dosage: UNK
     Dates: start: 20200208, end: 20200208
  11. METHYLPREDNISOLONE ACETATE [Concomitant]
     Active Substance: METHYLPREDNISOLONE ACETATE
     Dosage: UNK
     Dates: start: 20200901, end: 20200901
  12. METHYLPREDNISOLONE ACETATE [Concomitant]
     Active Substance: METHYLPREDNISOLONE ACETATE
     Dosage: UNK
     Dates: start: 20211129, end: 20211129
  13. METHYLPREDNISOLONE ACETATE [Concomitant]
     Active Substance: METHYLPREDNISOLONE ACETATE
     Dosage: UNK
     Dates: start: 20220202, end: 20220202
  14. METHYLPREDNISOLONE ACETATE [Concomitant]
     Active Substance: METHYLPREDNISOLONE ACETATE
     Dosage: UNK
     Dates: start: 20221029, end: 20221029
  15. SULFASALAZINE [Concomitant]
     Active Substance: SULFASALAZINE
     Indication: Adverse event
     Dosage: UNK
     Dates: start: 2022, end: 2024
  16. PEPTAC [CALCIUM CARBONATE;SODIUM ALGINATE;SODIUM BICARBONATE] [Concomitant]
     Indication: Gastrooesophageal reflux disease
     Dosage: 10 MILLILITER, 4X/DAY (QID)
     Dates: start: 20240510
  17. EVOLVE HA [Concomitant]
     Indication: Dry eye
     Dosage: 1 DROP, ONCE DAILY (QD)
     Dates: start: 20230810
  18. VISUXL [Concomitant]
     Indication: Dry eye
     Dosage: 1 DROP, ONCE DAILY (QD)
     Dates: start: 20230801
  19. XAILIN [Concomitant]
     Indication: Dry eye
     Dosage: 1 DROP, ONCE DAILY (QD)
     Dates: start: 20230831
  20. LANSOPRAZOLE [Concomitant]
     Active Substance: LANSOPRAZOLE
     Indication: Gastrooesophageal reflux disease
     Dosage: 30 MILLIGRAM, 2X/DAY (BID)
     Dates: start: 20180306
  21. METOCLOPRAMIDE [Concomitant]
     Active Substance: METOCLOPRAMIDE
     Indication: Gastrooesophageal reflux disease
     Dosage: 10 MILLIGRAM, 3X/DAY (TID)
     Dates: start: 20221018
  22. PREDNISOLONE [Concomitant]
     Active Substance: PREDNISOLONE
     Indication: Pneumonitis
     Dosage: 10 MILLIGRAM, ONCE DAILY (QD)
     Dates: start: 20221230
  23. PREDNISOLONE [Concomitant]
     Active Substance: PREDNISOLONE
     Dosage: 20 MILLIGRAM, ONCE DAILY (QD)
     Dates: start: 20240905, end: 20240909

REACTIONS (2)
  - Pneumonitis [Recovered/Resolved]
  - Malaise [Unknown]

NARRATIVE: CASE EVENT DATE: 20240824
